FAERS Safety Report 7374188-7 (Version None)
Quarter: 2011Q1

REPORT INFORMATION
  Report Type: 
  Country: None (occurrence: None)
  Receive Date: 20110325
  Receipt Date: 20110317
  Transmission Date: 20110831
  Serious: No
  Sender: FDA-Public Use
  Company Number: US-PFIZER INC-2011059551

PATIENT
  Sex: Female
  Weight: 70.3 kg

DRUGS (2)
  1. DOXYCYCLINE [Suspect]
     Dosage: UNK
     Dates: start: 20110301
  2. AZITHROMYCIN [Suspect]
     Indication: NASOPHARYNGITIS
     Dosage: UNK
     Route: 048
     Dates: start: 20100801, end: 20100801

REACTIONS (5)
  - ILL-DEFINED DISORDER [None]
  - DYSPNOEA [None]
  - VISUAL IMPAIRMENT [None]
  - GASTRITIS [None]
  - GASTRIC POLYPS [None]
